FAERS Safety Report 8983730 (Version 1)
Quarter: 2012Q4

REPORT INFORMATION
  Report Type: 
  Country: FR (occurrence: FR)
  Receive Date: 20121224
  Receipt Date: 20121224
  Transmission Date: 20130627
  Serious: Yes (Life-Threatening, Hospitalization, Other)
  Sender: FDA-Public Use
  Company Number: FR-ROCHE-1024331

PATIENT
  Age: 18 Year
  Sex: Female

DRUGS (20)
  1. LEXOMIL [Suspect]
     Indication: PRODUCT USED FOR UNKNOWN INDICATION
     Route: 048
     Dates: start: 20090504
  2. CELLCEPT [Suspect]
     Indication: PRODUCT USED FOR UNKNOWN INDICATION
     Route: 065
  3. BACTRIM [Suspect]
     Indication: PRODUCT USED FOR UNKNOWN INDICATION
     Route: 065
  4. RIVOTRIL [Suspect]
     Indication: PRODUCT USED FOR UNKNOWN INDICATION
     Route: 065
  5. PROGRAF [Concomitant]
  6. SIMULECT [Concomitant]
  7. BRISTOPEN [Concomitant]
  8. CLAFORAN [Concomitant]
  9. TIENAM [Concomitant]
  10. ZYVOXID [Concomitant]
  11. AMIKLIN [Concomitant]
  12. AZACTAM [Concomitant]
  13. FOSFOMYCINE [Concomitant]
  14. ABELCET [Concomitant]
  15. INIPOMP [Concomitant]
  16. HALDOL [Concomitant]
  17. ROVALCYTE [Concomitant]
  18. NOZINAN (UNITED KINGDOM) [Concomitant]
  19. BURINEX [Concomitant]
  20. FLUIMUCIL ORAL FORTE [Concomitant]

REACTIONS (6)
  - Suicide attempt [Unknown]
  - Renal failure [Unknown]
  - Hepatitis fulminant [Recovered/Resolved with Sequelae]
  - Liver transplant [Recovered/Resolved with Sequelae]
  - Overdose [Unknown]
  - Coma [Unknown]
